FAERS Safety Report 23506475 (Version 1)
Quarter: 2024Q1

REPORT INFORMATION
  Report Type: Spontaneous
  Country: US (occurrence: US)
  Receive Date: 20240209
  Receipt Date: 20240209
  Transmission Date: 20240409
  Serious: No
  Sender: FDA-Public Use
  Company Number: US-AMGEN-USASP2024024905

PATIENT
  Sex: Female

DRUGS (2)
  1. NPLATE [Suspect]
     Active Substance: ROMIPLOSTIM
     Indication: Immune thrombocytopenia
     Dosage: 625 MICROGRAM (595.6 MCG, RECONSTITUTED 625 MCG)
     Route: 065
  2. NPLATE [Suspect]
     Active Substance: ROMIPLOSTIM
     Dosage: 625 MICROGRAM (595.6 MCG, RECONSTITUTED 625 MCG)
     Route: 065

REACTIONS (1)
  - Platelet count increased [Unknown]
